FAERS Safety Report 13862661 (Version 6)
Quarter: 2018Q1

REPORT INFORMATION
  Report Type: Report from Study
  Country: ES (occurrence: ES)
  Receive Date: 20170814
  Receipt Date: 20180323
  Transmission Date: 20180508
  Serious: Yes (Hospitalization)
  Sender: FDA-Public Use
  Company Number: ES-ROCHE-1975212

PATIENT
  Age: 62 Year
  Sex: Male
  Weight: 69 kg

DRUGS (5)
  1. SERC (SPAIN) [Concomitant]
     Indication: MENIERE^S DISEASE
     Route: 048
  2. ENALAPRIL [Concomitant]
     Active Substance: ENALAPRIL
     Indication: HYPERTENSION
     Route: 048
  3. COBIMETINIB. [Suspect]
     Active Substance: COBIMETINIB
     Indication: MALIGNANT MELANOMA
     Dosage: RUN IN PERIOD (CYCLE 1 = 28 DAYS) AS PER PROTOCOL.?DATE OF MOST RECENT DOSE ADMINISITERED PRIOR TO E
     Route: 048
     Dates: start: 20170622
  4. ATEZOLIZUMAB. [Suspect]
     Active Substance: ATEZOLIZUMAB
     Indication: MALIGNANT MELANOMA
     Dosage: DATE OF MOST RECENT DOSE PRIOR TO SERIOUS ADVERSE EVENT WAS ON 20/JUL/2017
     Route: 042
     Dates: start: 20170720
  5. VEMURAFENIB. [Suspect]
     Active Substance: VEMURAFENIB
     Indication: MALIGNANT MELANOMA
     Dosage: RUN IN PERIOD (CYCLE 1 = 28 DAYS) AS PER PROTOCOL. ?DATE OF MOST RECENT DOSE PRIOR TO EVENT ONSET WA
     Route: 048
     Dates: start: 20170622

REACTIONS (4)
  - Guillain-Barre syndrome [Not Recovered/Not Resolved]
  - Peritonitis [Recovered/Resolved]
  - Cholecystitis acute [Recovered/Resolved]
  - Hepatitis [Recovered/Resolved]

NARRATIVE: CASE EVENT DATE: 201708
